FAERS Safety Report 6359263-8 (Version None)
Quarter: 2009Q3

REPORT INFORMATION
  Report Type: 
  Country: None (occurrence: None)
  Receive Date: 20090914
  Receipt Date: 20090903
  Transmission Date: 20100115
  Serious: No
  Sender: FDA-Public Use
  Company Number: JP-2009-1861

PATIENT
  Sex: Male

DRUGS (5)
  1. NAVELBINE [Suspect]
     Indication: LUNG SQUAMOUS CELL CARCINOMA STAGE UNSPECIFIED
     Dosage: 35 MG IV
     Route: 042
     Dates: start: 20090708, end: 20090720
  2. RANDA [Concomitant]
  3. MODACIN [Concomitant]
  4. MEROFEN [Concomitant]
  5. DALACIN [Concomitant]

REACTIONS (3)
  - ARTERIOSCLEROSIS OBLITERANS [None]
  - INJECTION SITE PHLEBITIS [None]
  - PNEUMONIA [None]
